FAERS Safety Report 7630551-8 (Version None)
Quarter: 2011Q3

REPORT INFORMATION
  Report Type: 
  Country: None (occurrence: None)
  Receive Date: 20110722
  Receipt Date: 20110712
  Transmission Date: 20111222
  Serious: Yes (Other)
  Sender: FDA-Public Use
  Company Number: PHHY2011JP49915

PATIENT
  Age: 56 Year
  Sex: Male
  Weight: 54 kg

DRUGS (3)
  1. DANAZOL [Concomitant]
  2. EXJADE [Suspect]
     Dosage: 250 MG, UNK
     Route: 048
     Dates: start: 20110502, end: 20110531
  3. EXJADE [Suspect]
     Indication: IRON OVERLOAD
     Dosage: 125 MG, UNK
     Route: 048
     Dates: start: 20110412, end: 20110501

REACTIONS (4)
  - URINE COLOUR ABNORMAL [None]
  - HEPATIC FUNCTION ABNORMAL [None]
  - SPLENOMEGALY [None]
  - JAUNDICE [None]
